FAERS Safety Report 16899165 (Version 1)
Quarter: 2019Q4

REPORT INFORMATION
  Report Type: Spontaneous
  Country: US (occurrence: US)
  Receive Date: 20191008
  Receipt Date: 20191008
  Transmission Date: 20200122
  Serious: No
  Sender: FDA-Public Use
  Company Number: None

PATIENT
  Sex: Male
  Weight: 88.65 kg

DRUGS (2)
  1. CYRAMZA [Suspect]
     Active Substance: RAMUCIRUMAB
     Dosage: ?          OTHER FREQUENCY:DAY 1 AND DAY 15;?
     Route: 042
  2. CYRAMZA [Suspect]
     Active Substance: RAMUCIRUMAB
     Dosage: ?          OTHER FREQUENCY:DAY 1 AND DAY 15;?
     Route: 042

REACTIONS (2)
  - Chest pain [None]
  - Thrombosis [None]
